FAERS Safety Report 4450541-6 (Version None)
Quarter: 2004Q3

REPORT INFORMATION
  Report Type: 
  Country: None (occurrence: None)
  Receive Date: 20040915
  Receipt Date: 20040830
  Transmission Date: 20050211
  Serious: Yes (Hospitalization)
  Sender: FDA-Public Use
  Company Number: US-2004-031305

PATIENT
  Age: 53 Year
  Sex: Male

DRUGS (1)
  1. MAGNEVIST [Suspect]
     Indication: ANGIOGRAM
     Dosage: 110 ML, 1 DOSE, INTRA-ARTERIAL
     Route: 013

REACTIONS (1)
  - RENAL FAILURE ACUTE [None]
